FAERS Safety Report 8733025 (Version 2)
Quarter: 2012Q4

REPORT INFORMATION
  Report Type: Spontaneous
  Country: GB (occurrence: None)
  Receive Date: 20120806
  Receipt Date: 20121018
  Transmission Date: 20130627
  Serious: Yes (Death, Congenital Anomaly, Other)
  Sender: FDA-Public Use
  Company Number: GER/UKI/12/0025165

PATIENT
  Sex: Male
  Weight: 2.3 kg

DRUGS (2)
  1. LAMOTRIGINE [Suspect]
     Indication: PRODUCT USED FOR UNKNOWN INDICATION
     Dosage: 300 MG, 1 IN 1 D, TRANSPLACENTAL
     Route: 064
     Dates: start: 201008
  2. FOLIC ACID [Concomitant]

REACTIONS (5)
  - Congenital anomaly [None]
  - Renal aplasia [None]
  - Polydactyly [None]
  - Anal atresia [None]
  - Maternal drugs affecting foetus [None]
